FAERS Safety Report 8163028-4 (Version None)
Quarter: 2012Q1

REPORT INFORMATION
  Report Type: 
  Country: None (occurrence: None)
  Receive Date: 20120224
  Receipt Date: 20120215
  Transmission Date: 20120608
  Serious: Yes (Life-Threatening, Hospitalization)
  Sender: FDA-Public Use
  Company Number: US-BAYER-2011-083344

PATIENT
  Age: 28 Year
  Sex: Female

DRUGS (3)
  1. DROSPIRENONE AND ETHINYL ESTRADIOL [Suspect]
     Route: 048
  2. YASMIN [Suspect]
     Route: 048
  3. PREVACID [Concomitant]
     Dosage: 30 MG, UNK
     Route: 048

REACTIONS (7)
  - INJURY [None]
  - THROMBOSIS [None]
  - PAIN [None]
  - ANXIETY [None]
  - DEEP VEIN THROMBOSIS [None]
  - ANHEDONIA [None]
  - FATIGUE [None]
